FAERS Safety Report 9845745 (Version 1)
Quarter: 2014Q1

REPORT INFORMATION
  Report Type: Spontaneous
  Country: US (occurrence: US)
  Receive Date: 20140127
  Receipt Date: 20140127
  Transmission Date: 20141002
  Serious: No
  Sender: FDA-Public Use
  Company Number: US-PFIZER INC-2014023273

PATIENT
  Age: 58 Year
  Sex: Female
  Weight: 92.97 kg

DRUGS (3)
  1. CELEBREX [Suspect]
     Indication: ARTHRALGIA
     Dosage: UNK
  2. CELEBREX [Suspect]
     Indication: RHEUMATOID ARTHRITIS
     Dosage: 200 MG, DAILY
     Dates: start: 2011
  3. LEFLUNOMIDE [Concomitant]
     Dosage: 20 MG, DAILY
     Dates: start: 2013

REACTIONS (3)
  - Vitreous floaters [Recovering/Resolving]
  - Photopsia [Recovering/Resolving]
  - Protein total increased [Unknown]
